FAERS Safety Report 20315636 (Version 1)
Quarter: 2022Q1

REPORT INFORMATION
  Report Type: Spontaneous
  Country: US (occurrence: None)
  Receive Date: 20220110
  Receipt Date: 20220110
  Transmission Date: 20220423
  Serious: No
  Sender: FDA-Public Use
  Company Number: US-ROCHE-2775907

PATIENT
  Sex: Female
  Weight: 95.340 kg

DRUGS (6)
  1. RITUXAN [Suspect]
     Active Substance: RITUXIMAB
     Indication: Rheumatoid arthritis
     Dosage: STRENGTH: 500MG/50ML, ONGOING: YES
     Route: 042
     Dates: start: 20200818
  2. LEVOTHYROXINE [Concomitant]
     Active Substance: LEVOTHYROXINE
     Dosage: ONGOING: UNKNOWN
     Route: 048
     Dates: start: 20210222
  3. LIDOCAINE [Concomitant]
     Active Substance: LIDOCAINE
     Dosage: ROUTE: EXTERNAL: ONGOING: UNKNOWN
     Dates: start: 20210222
  4. COENZYME Q10 [Concomitant]
     Active Substance: DIETARY SUPPLEMENT\UBIDECARENONE
     Dosage: ONGOING: UNKNOWN
     Route: 048
     Dates: start: 20210222
  5. CYANOCOBALAMIN [Concomitant]
     Active Substance: CYANOCOBALAMIN
     Dosage: ONGOING: UNKNOWN
     Dates: start: 20210222
  6. GLUCOPHAGE [Concomitant]
     Active Substance: METFORMIN HYDROCHLORIDE
     Dosage: ONGOING: UNKNOWN
     Route: 048
     Dates: start: 20210222

REACTIONS (1)
  - Pain [Recovering/Resolving]
